FAERS Safety Report 4896410-9 (Version None)
Quarter: 2006Q1

REPORT INFORMATION
  Report Type: 
  Country: None (occurrence: None)
  Receive Date: 20060131
  Receipt Date: 20060123
  Transmission Date: 20060701
  Serious: Yes (Death)
  Sender: FDA-Public Use
  Company Number: US-ABBOTT-06P-163-0323259-00

PATIENT
  Sex: Male

DRUGS (12)
  1. TRICOR [Suspect]
     Indication: HYPERCHOLESTEROLAEMIA
     Route: 048
     Dates: end: 20051019
  2. ROSIGLITAZONE MALEATE [Concomitant]
     Indication: DIABETES MELLITUS NON-INSULIN-DEPENDENT
     Route: 048
     Dates: end: 20051019
  3. GLIBENCLAMIDE [Concomitant]
     Indication: DIABETES MELLITUS NON-INSULIN-DEPENDENT
     Route: 048
     Dates: end: 20051019
  4. METFORMIN [Concomitant]
     Indication: DIABETES MELLITUS NON-INSULIN-DEPENDENT
     Route: 048
     Dates: end: 20051019
  5. METOPROLOL [Concomitant]
     Indication: HYPERTENSION
     Route: 048
     Dates: end: 20051019
  6. GLYCERYL TRINITRATE [Concomitant]
     Indication: CHEST PAIN
     Route: 060
     Dates: end: 20051019
  7. IRBESARTAN [Concomitant]
     Indication: DRUG USE FOR UNKNOWN INDICATION
     Route: 048
     Dates: end: 20051019
  8. LANSOPRAZOLE [Concomitant]
     Indication: GASTROOESOPHAGEAL REFLUX DISEASE
     Route: 048
     Dates: end: 20051019
  9. LEXAPRO [Concomitant]
     Indication: DRUG USE FOR UNKNOWN INDICATION
     Route: 048
     Dates: end: 20051019
  10. ASPIRIN [Concomitant]
     Indication: THROMBOSIS PROPHYLAXIS
     Route: 048
     Dates: end: 20051019
  11. FUROSEMIDE [Concomitant]
     Indication: HYPERTENSION
     Route: 048
     Dates: end: 20051019
  12. POTASSIUM [Concomitant]
     Indication: MINERAL SUPPLEMENTATION
     Route: 048
     Dates: end: 20051019

REACTIONS (2)
  - CARDIO-RESPIRATORY ARREST [None]
  - PULMONARY HYPERTENSION [None]
